FAERS Safety Report 5818373-1 (Version None)
Quarter: 2008Q3

REPORT INFORMATION
  Report Type: 
  Country: None (occurrence: None)
  Receive Date: 20080718
  Receipt Date: 20080709
  Transmission Date: 20090109
  Serious: Yes (Hospitalization, Other)
  Sender: FDA-Public Use
  Company Number: 056-21880-08040823

PATIENT
  Age: 54 Year
  Sex: Male

DRUGS (7)
  1. REVLIMID [Suspect]
     Indication: MULTIPLE MYELOMA
     Dosage: 15 MG, 1 IN 1 D, ORAL
     Route: 048
     Dates: start: 20071020
  2. DEXAMETHASONE TAB [Concomitant]
  3. CALCIDIA         (CALCIUM CARBONATE) [Concomitant]
  4. FUNGIZONE [Concomitant]
  5. INIPOMP         (PANTOPRAZOLE) [Concomitant]
  6. KEPPRA [Concomitant]
  7. ZOLPIDEM TARTRATE [Concomitant]

REACTIONS (3)
  - ALVEOLITIS [None]
  - BETA HAEMOLYTIC STREPTOCOCCAL INFECTION [None]
  - INTERSTITIAL LUNG DISEASE [None]
